FAERS Safety Report 13824404 (Version 1)
Quarter: 2017Q3

REPORT INFORMATION
  Report Type: Spontaneous
  Country: JP (occurrence: JP)
  Receive Date: 20170802
  Receipt Date: 20170802
  Transmission Date: 20171127
  Serious: Yes (Other)
  Sender: FDA-Public Use
  Company Number: JP-GLAXOSMITHKLINE-JP2017JPN092795

PATIENT
  Age: 37 Year
  Sex: Male
  Weight: 61 kg

DRUGS (3)
  1. DIFLUCAN [Concomitant]
     Active Substance: FLUCONAZOLE
     Dosage: 200 MG, QD
  2. SAMTIREL [Suspect]
     Active Substance: ATOVAQUONE
     Indication: ANTIFUNGAL PROPHYLAXIS
     Dosage: 750 MG, BID
     Route: 048
     Dates: start: 20170614
  3. CALONAL [Concomitant]
     Active Substance: ACETAMINOPHEN
     Dosage: 900 MG, TID

REACTIONS (5)
  - Intraocular pressure increased [Unknown]
  - Lacrimation increased [Unknown]
  - Eye pain [Unknown]
  - Headache [Unknown]
  - CSF cell count increased [Unknown]

NARRATIVE: CASE EVENT DATE: 201706
